FAERS Safety Report 24833743 (Version 2)
Quarter: 2025Q1

REPORT INFORMATION
  Report Type: Spontaneous
  Country: US (occurrence: US)
  Receive Date: 20250112
  Receipt Date: 20250312
  Transmission Date: 20250409
  Serious: No
  Sender: SANOFI AVENTIS
  Company Number: US-SA-2025SA009448

PATIENT
  Sex: Male

DRUGS (1)
  1. DUPIXENT [Suspect]
     Active Substance: DUPILUMAB
     Indication: Dermatitis atopic
     Dosage: 300 MG, QOW
     Route: 058
     Dates: start: 202211

REACTIONS (4)
  - Pain [Unknown]
  - Product dose omission issue [Unknown]
  - Dermatitis atopic [Unknown]
  - Therapeutic response shortened [Unknown]
